FAERS Safety Report 4552840-6 (Version None)
Quarter: 2005Q1

REPORT INFORMATION
  Report Type: 
  Country: None (occurrence: None)
  Receive Date: 20050114
  Receipt Date: 20041125
  Transmission Date: 20050727
  Serious: Yes (Hospitalization, Disabling, Other)
  Sender: FDA-Public Use
  Company Number: IE-MERCK-0411GBR00255

PATIENT
  Age: 34 Year
  Sex: Female

DRUGS (5)
  1. SINGULAIR [Suspect]
     Indication: ASTHMA
     Route: 048
     Dates: start: 20040507, end: 20040621
  2. ALBUTEROL [Concomitant]
     Indication: ASTHMA
     Route: 055
  3. LANSOPRAZOLE [Concomitant]
     Indication: DYSPEPSIA
     Route: 065
     Dates: start: 20040301, end: 20040629
  4. DESOGESTREL AND ETHINYL ESTRADIOL [Concomitant]
     Indication: CONTRACEPTION
     Route: 065
     Dates: end: 20040629
  5. FLUTICASONE PROPIONATE [Concomitant]
     Indication: SINUSITIS
     Route: 065

REACTIONS (1)
  - ALLERGIC GRANULOMATOUS ANGIITIS [None]
